FAERS Safety Report 17847495 (Version 2)
Quarter: 2020Q3

REPORT INFORMATION
  Report Type: Spontaneous
  Country: US (occurrence: US)
  Receive Date: 20200601
  Receipt Date: 20200708
  Transmission Date: 20201103
  Serious: Yes (Other)
  Sender: FDA-Public Use
  Company Number: US-NOVOPROD-730418

PATIENT
  Age: 72 Year
  Sex: Female
  Weight: 101.59 kg

DRUGS (2)
  1. TRESIBA [Suspect]
     Active Substance: INSULIN DEGLUDEC
     Indication: TYPE 2 DIABETES MELLITUS
     Dosage: 70 UNITS
     Route: 058
     Dates: start: 201911
  2. TRESIBA [Suspect]
     Active Substance: INSULIN DEGLUDEC
     Dosage: 75 IU, QD
     Route: 058
     Dates: end: 202005

REACTIONS (4)
  - Pneumonia [Unknown]
  - Hypertensive urgency [Recovering/Resolving]
  - Cardiac failure congestive [Recovering/Resolving]
  - Malignant hypertension [Unknown]

NARRATIVE: CASE EVENT DATE: 20200515
